FAERS Safety Report 14285734 (Version 6)
Quarter: 2018Q3

REPORT INFORMATION
  Report Type: Report from Study
  Country: ZA (occurrence: ZA)
  Receive Date: 20171214
  Receipt Date: 20180925
  Transmission Date: 20181010
  Serious: Yes (Hospitalization, Other)
  Sender: FDA-Public Use
  Company Number: ZA-BRISTOL-MYERS SQUIBB COMPANY-BMS-2017-109680

PATIENT
  Age: 49 Year
  Sex: Female

DRUGS (2)
  1. ABATACEPT [Suspect]
     Active Substance: ABATACEPT
     Indication: RHEUMATOID ARTHRITIS
     Dosage: 125 MG, QWK
     Route: 058
     Dates: start: 201802, end: 20180809
  2. ABATACEPT [Suspect]
     Active Substance: ABATACEPT
     Indication: RHEUMATOID ARTHRITIS
     Dosage: 1000 MG, QMO
     Route: 042
     Dates: start: 201401, end: 201711

REACTIONS (4)
  - Decubitus ulcer [Recovering/Resolving]
  - Cellulitis [Recovering/Resolving]
  - Inappropriate schedule of drug administration [Unknown]
  - Depressed mood [Unknown]

NARRATIVE: CASE EVENT DATE: 20171125
